FAERS Safety Report 5392189-5 (Version None)
Quarter: 2007Q3

REPORT INFORMATION
  Report Type: 
  Country: None (occurrence: None)
  Receive Date: 20070717
  Receipt Date: 20070717
  Transmission Date: 20080115
  Serious: No
  Sender: FDA-Public Use
  Company Number: None

PATIENT
  Age: 61 Year
  Sex: Male
  Weight: 81.6475 kg

DRUGS (1)
  1. ZICAM COLD REMEDY NASAL GEL ^HOMEOPATHIC^ ZICAM LLC, SUB, MATRIX INITA [Suspect]
     Indication: NASOPHARYNGITIS
     Dosage: TWICE DAILEY NASAL
     Route: 045
     Dates: start: 20070101, end: 20070330

REACTIONS (2)
  - AGEUSIA [None]
  - ANOSMIA [None]
